FAERS Safety Report 18577073 (Version 2)
Quarter: 2020Q4

REPORT INFORMATION
  Report Type: Report from Study
  Country: JP (occurrence: JP)
  Receive Date: 20201203
  Receipt Date: 20201224
  Transmission Date: 20210114
  Serious: Yes (Hospitalization)
  Sender: FDA-Public Use
  Company Number: JP-009507513-2008JPN005542

PATIENT
  Age: 71 Year
  Sex: Male
  Weight: 48 kg

DRUGS (16)
  1. CARBOPLATIN. [Concomitant]
     Active Substance: CARBOPLATIN
     Indication: NON-SMALL CELL LUNG CANCER STAGE IV
     Dosage: TITRATED TO AN AREA UNDER THE PLASMA DRUG CONCENTRATION TIME CURVE OF 5 MG/ML/MIN, Q3W ON DAY 1
     Route: 042
     Dates: start: 20200715, end: 20200715
  2. PANVITAN [Concomitant]
     Active Substance: VITAMINS
     Indication: DRUG TOXICITY PROPHYLAXIS
     Dosage: 1 GRAM, QD
     Route: 048
     Dates: start: 20200630
  3. GLACTIV [Concomitant]
     Active Substance: SITAGLIPTIN
     Indication: TYPE 2 DIABETES MELLITUS
     Dosage: 25 MILLIGRAM, QD
     Route: 048
     Dates: start: 201901, end: 20200817
  4. MAGNESIUM OXIDE. [Concomitant]
     Active Substance: MAGNESIUM OXIDE
     Indication: CONSTIPATION PROPHYLAXIS
     Dosage: TOTAL DAILY DOSE: 1980 MILLIGRAM, TID
     Route: 048
     Dates: start: 20200714, end: 20200726
  5. PEMETREXED. [Suspect]
     Active Substance: PEMETREXED
     Dosage: DOSE REDUCED, Q3W
     Route: 042
     Dates: start: 20200818, end: 20200818
  6. CALONAL [Concomitant]
     Active Substance: ACETAMINOPHEN
     Indication: TUMOUR PAIN
     Dosage: 200 MILLIGRAM, QID
     Route: 048
     Dates: start: 20200623
  7. OXINORM (OXYCODONE HYDROCHLORIDE) [Concomitant]
     Active Substance: OXYCODONE HYDROCHLORIDE
     Indication: TUMOUR PAIN
     Dosage: TOTAL DAILY DOSE: 10 MILLIGRAM, PRN
     Route: 048
     Dates: start: 20200521
  8. SYMPROIC [Concomitant]
     Active Substance: NALDEMEDINE
     Indication: CONSTIPATION
     Dosage: 0.2 MILLIGRAM, QD
     Route: 048
     Dates: start: 20200727, end: 20200817
  9. PEMBROLIZUMAB. [Suspect]
     Active Substance: PEMBROLIZUMAB
     Indication: NON-SMALL CELL LUNG CANCER STAGE IV
     Dosage: 200 MILLIGRAM, Q3W ON DAY 1
     Route: 042
     Dates: start: 20200715, end: 20200715
  10. PEMETREXED. [Suspect]
     Active Substance: PEMETREXED
     Indication: NON-SMALL CELL LUNG CANCER STAGE IV
     Dosage: 500 MILLIGRAM/SQ. METER, Q3W ON DAY 1
     Route: 042
     Dates: start: 20200715, end: 20200715
  11. LANSOPRAZOLE. [Concomitant]
     Active Substance: LANSOPRAZOLE
     Indication: PROPHYLAXIS AGAINST GASTROINTESTINAL ULCER
     Dosage: 15 MILLIGRAM, QD
     Route: 048
     Dates: start: 20200630
  12. CARBOPLATIN. [Concomitant]
     Active Substance: CARBOPLATIN
     Dosage: DOSE REDUCED, Q3W
     Route: 042
     Dates: start: 20200818, end: 20200818
  13. HARNAL [Concomitant]
     Active Substance: TAMSULOSIN HYDROCHLORIDE
     Indication: BENIGN PROSTATIC HYPERPLASIA
     Dosage: 0.2 MILLIGRAM, QD
     Route: 048
     Dates: start: 201901
  14. OXYCONTIN [Concomitant]
     Active Substance: OXYCODONE HYDROCHLORIDE
     Indication: TUMOUR PAIN
     Dosage: 40 MILLIGRAM, BID
     Route: 048
     Dates: start: 20200521
  15. PEMBROLIZUMAB. [Suspect]
     Active Substance: PEMBROLIZUMAB
     Dosage: 200 MILLIGRAM, Q3W ON DAY 1
     Route: 042
     Dates: start: 20200818, end: 20200818
  16. NEW LECICARBON [Concomitant]
     Active Substance: SODIUM BICARBONATE\SODIUM PHOSPHATE, MONOBASIC
     Indication: CONSTIPATION
     Dosage: TOTAL DAILY DOSE: 1 SUPPOSITORY, PRN
     Route: 054
     Dates: start: 20200727, end: 20200727

REACTIONS (2)
  - Immune-mediated cholangitis [Not Recovered/Not Resolved]
  - Immune-mediated cholangitis [Recovered/Resolved]

NARRATIVE: CASE EVENT DATE: 20200805
